FAERS Safety Report 6754164-5 (Version None)
Quarter: 2010Q2

REPORT INFORMATION
  Report Type: 
  Country: None (occurrence: None)
  Receive Date: 20100603
  Receipt Date: 20100526
  Transmission Date: 20101027
  Serious: Yes (Other)
  Sender: FDA-Public Use
  Company Number: PHHO2010US04418

PATIENT
  Sex: Male
  Weight: 70.4 kg

DRUGS (3)
  1. AFINITOR [Suspect]
     Indication: PANCREATIC CARCINOMA
     Dosage: 5 MG DAILY
     Route: 048
     Dates: start: 20100119, end: 20100216
  2. AFINITOR [Suspect]
     Dosage: 5MG , MWF
     Dates: start: 20100222
  3. GEMCITABINE COMPARATOR COMP-GEM+ [Suspect]
     Indication: PANCREATIC CARCINOMA
     Dosage: 800 MG D1 +D8
     Route: 042
     Dates: start: 20100119

REACTIONS (1)
  - THROMBOCYTOPENIA [None]
